FAERS Safety Report 19052541 (Version 1)
Quarter: 2021Q1

REPORT INFORMATION
  Report Type: Spontaneous
  Country: HU (occurrence: HU)
  Receive Date: 20210324
  Receipt Date: 20210324
  Transmission Date: 20210420
  Serious: Yes (Hospitalization, Other)
  Sender: FDA-Public Use
  Company Number: NVSC2021HU064628

PATIENT
  Age: 37 Year
  Sex: Female

DRUGS (5)
  1. METHYLPREDNISOLONE. [Concomitant]
     Active Substance: METHYLPREDNISOLONE
     Indication: PRODUCT USED FOR UNKNOWN INDICATION
     Dosage: 16 MG
     Route: 065
     Dates: start: 2015
  2. SANDIMMUN [Suspect]
     Active Substance: CYCLOSPORINE
     Indication: PSORIATIC ARTHROPATHY
     Dosage: 300 MG, QD (FOR 4 MONTHS)
     Route: 065
     Dates: start: 2015, end: 2015
  3. METHOTREXATE. [Suspect]
     Active Substance: METHOTREXATE
     Indication: PSORIATIC ARTHROPATHY
     Dosage: 15 MG, QW
     Route: 065
     Dates: start: 2015, end: 2015
  4. INFLIXIMAB [Concomitant]
     Active Substance: INFLIXIMAB
     Indication: PRODUCT USED FOR UNKNOWN INDICATION
     Dosage: UNK
     Route: 065
  5. METHYLPREDNISOLONE. [Concomitant]
     Active Substance: METHYLPREDNISOLONE
     Dosage: UNK (DECREASED GRADUALLY)
     Route: 065

REACTIONS (13)
  - Arthropathy [Unknown]
  - Hypertension [Unknown]
  - Infection [Unknown]
  - Tachycardia [Unknown]
  - Sacroiliitis [Unknown]
  - Arthralgia [Unknown]
  - Dermatitis exfoliative generalised [Unknown]
  - Cutaneous symptom [Not Recovered/Not Resolved]
  - Pyrexia [Unknown]
  - Lip swelling [Unknown]
  - Psoriasis [Unknown]
  - Joint swelling [Unknown]
  - Hand deformity [Unknown]

NARRATIVE: CASE EVENT DATE: 2015
